FAERS Safety Report 11021590 (Version 1)
Quarter: 2015Q2

REPORT INFORMATION
  Report Type: Spontaneous
  Country: FR (occurrence: FR)
  Receive Date: 20150413
  Receipt Date: 20150413
  Transmission Date: 20150821
  Serious: Yes (Death)
  Sender: FDA-Public Use
  Company Number: FR-BAYER-2015-127997

PATIENT
  Age: 58 Year
  Sex: Male

DRUGS (17)
  1. IMIPENEM [Suspect]
     Active Substance: IMIPENEM
     Indication: PYREXIA
     Dosage: D24 TO D39
  2. CEFTAZIDIME. [Suspect]
     Active Substance: CEFTAZIDIME
     Indication: PYREXIA
     Dosage: D13 TO D24
  3. ANTITHYMOCYTE IMMUNOGLOBULIN (RABBIT) [Concomitant]
     Active Substance: LAPINE T-LYMPHOCYTE IMMUNE GLOBULIN
     Indication: BONE MARROW CONDITIONING REGIMEN
     Dosage: ON D9
  4. CYCLOSPORINE. [Concomitant]
     Active Substance: CYCLOSPORINE
     Indication: PROPHYLAXIS AGAINST GRAFT VERSUS HOST DISEASE
     Dosage: FROM D11
  5. PIPERACILLIN AND TAZOBACTAM [Suspect]
     Active Substance: PIPERACILLIN SODIUM\TAZOBACTAM SODIUM
     Indication: PYREXIA
     Dosage: FROM D9 TO D13
  6. AMSACRINE [Concomitant]
     Active Substance: AMSACRINE
     Indication: CHRONIC MYELOID LEUKAEMIA
  7. AMIKACIN [Suspect]
     Active Substance: AMIKACIN
     Indication: PYREXIA
     Dosage: D24 TO D39
  8. FLUDARABINE [Concomitant]
     Active Substance: FLUDARABINE PHOSPHATE
     Indication: CHRONIC MYELOID LEUKAEMIA
  9. CYTARABINE. [Concomitant]
     Active Substance: CYTARABINE
     Indication: CHRONIC MYELOID LEUKAEMIA
  10. CIPROFLOXACIN. [Suspect]
     Active Substance: CIPROFLOXACIN
     Indication: PROTEUS TEST POSITIVE
     Dosage: FROM D10 TO D39
  11. FLUDARABINE [Concomitant]
     Active Substance: FLUDARABINE PHOSPHATE
     Indication: CHEMOTHERAPY
     Dosage: FROM D1 TO D4
  12. CYCLOPHOSPHAMIDE. [Concomitant]
     Active Substance: CYCLOPHOSPHAMIDE
     Indication: BONE MARROW CONDITIONING REGIMEN
     Dosage: ON D9 AND D10
  13. CIPROFLOXACIN. [Suspect]
     Active Substance: CIPROFLOXACIN
     Indication: CULTURE STOOL POSITIVE
  14. LENOGRASTIM [Concomitant]
     Active Substance: LENOGRASTIM
     Indication: BONE MARROW CONDITIONING REGIMEN
     Dosage: FROM D1 TO D4
  15. AMSACRINE [Concomitant]
     Active Substance: AMSACRINE
     Indication: CHEMOTHERAPY
     Dosage: FROM D1 TO D4
  16. CYTARABINE. [Concomitant]
     Active Substance: CYTARABINE
     Indication: CHEMOTHERAPY
     Dosage: FROM D1 TO D4
  17. MYCOPHENOLATE MOFETIL. [Concomitant]
     Active Substance: MYCOPHENOLATE MOFETIL
     Indication: PROPHYLAXIS AGAINST GRAFT VERSUS HOST DISEASE
     Dosage: FROM D12

REACTIONS (5)
  - Bronchopulmonary aspergillosis [Fatal]
  - Multi-organ failure [Fatal]
  - Clostridium difficile colitis [Fatal]
  - Acute graft versus host disease in intestine [Fatal]
  - Hypoxia [Fatal]
